FAERS Safety Report 9544033 (Version 9)
Quarter: 2014Q4

REPORT INFORMATION
  Report Type: Spontaneous
  Country: JP (occurrence: JP)
  Receive Date: 20130923
  Receipt Date: 20141021
  Transmission Date: 20150529
  Serious: Yes (Hospitalization, Other)
  Sender: FDA-Public Use
  Company Number: JP-ABBVIE-13P-087-1143687-00

PATIENT
  Age: 41 Year
  Sex: Male
  Weight: 83 kg

DRUGS (7)
  1. CLOBETASOL PROPIONATE. [Concomitant]
     Active Substance: CLOBETASOL PROPIONATE
     Indication: PSORIASIS
     Dosage: ONE TO TWO TIMES PER DAY
     Route: 061
     Dates: start: 201207
  2. CLOBETASOL PROPIONATE. [Concomitant]
     Active Substance: CLOBETASOL PROPIONATE
     Indication: PSORIASIS
     Dosage: ONE TO TWO TIMES PER DAY
     Route: 061
     Dates: start: 201206
  3. HUMIRA [Suspect]
     Active Substance: ADALIMUMAB
     Route: 058
     Dates: start: 20120907, end: 20130215
  4. HUMIRA [Suspect]
     Active Substance: ADALIMUMAB
     Indication: PSORIASIS
     Route: 058
     Dates: start: 20120824, end: 20120824
  5. MAXACALCITOL [Concomitant]
     Active Substance: MAXACALCITOL
     Indication: PRODUCT USED FOR UNKNOWN INDICATION
     Dosage: ONE TO TWO TIMES PER DAY
     Route: 061
     Dates: start: 201208
  6. HUMIRA [Suspect]
     Active Substance: ADALIMUMAB
     Route: 058
     Dates: start: 20130308, end: 20130524
  7. HUMIRA [Suspect]
     Active Substance: ADALIMUMAB
     Route: 058
     Dates: start: 20130803, end: 20130816

REACTIONS (1)
  - Chronic inflammatory demyelinating polyradiculoneuropathy [Recovered/Resolved]

NARRATIVE: CASE EVENT DATE: 20130803
